FAERS Safety Report 7333210-4 (Version None)
Quarter: 2011Q1

REPORT INFORMATION
  Report Type: 
  Country: None (occurrence: None)
  Receive Date: 20110304
  Receipt Date: 20101026
  Transmission Date: 20110831
  Serious: No
  Sender: FDA-Public Use
  Company Number: US-BAYER-201023123BCC

PATIENT
  Sex: Male
  Weight: 10.455 kg

DRUGS (1)
  1. ALEVE [Suspect]
     Dosage: 1 DF, UNK
     Route: 048
     Dates: start: 20101026, end: 20101026

REACTIONS (1)
  - NO ADVERSE EVENT [None]
